FAERS Safety Report 9361807 (Version 1)
Quarter: 2013Q2

REPORT INFORMATION
  Report Type: Spontaneous
  Country: FR (occurrence: FR)
  Receive Date: 20130621
  Receipt Date: 20130621
  Transmission Date: 20140414
  Serious: Yes (Hospitalization)
  Sender: FDA-Public Use
  Company Number: FR-JNJFOC-20130610714

PATIENT
  Age: 52 Year
  Sex: Male

DRUGS (10)
  1. XARELTO [Suspect]
     Indication: PRODUCT USED FOR UNKNOWN INDICATION
     Dosage: IN THE EVENING
     Route: 048
     Dates: end: 20130525
  2. XARELTO [Suspect]
     Indication: PRODUCT USED FOR UNKNOWN INDICATION
     Route: 048
     Dates: start: 20130527
  3. PERINDOPRIL [Concomitant]
     Route: 065
  4. MIANSERIN [Concomitant]
     Route: 065
  5. TAHOR [Concomitant]
     Route: 065
  6. LERCAN [Concomitant]
     Route: 065
  7. SOTALEX [Concomitant]
     Route: 065
  8. NUCTALON [Concomitant]
     Route: 065
  9. ALPRAZOLAM [Concomitant]
     Route: 065
  10. VENLAFAXINE [Concomitant]
     Route: 065

REACTIONS (3)
  - Epistaxis [Recovered/Resolved]
  - Haemoglobin decreased [Recovered/Resolved]
  - Dyspnoea [Recovered/Resolved]
